FAERS Safety Report 8225625-7 (Version None)
Quarter: 2012Q1

REPORT INFORMATION
  Report Type: 
  Country: None (occurrence: None)
  Receive Date: 20120321
  Receipt Date: 20120314
  Transmission Date: 20120608
  Serious: Yes (Hospitalization, Other)
  Sender: FDA-Public Use
  Company Number: CA-PURDUE-CAN-2012-0002721

PATIENT
  Sex: Male

DRUGS (2)
  1. OXYCONTIN [Suspect]
     Indication: PAIN
     Dosage: 640 MG, DAILY
     Route: 065
  2. TYLENOL (CAPLET) [Concomitant]
     Indication: HEADACHE
     Dosage: UNK

REACTIONS (9)
  - DRUG WITHDRAWAL SYNDROME [None]
  - UNEVALUABLE EVENT [None]
  - PAIN [None]
  - INCOHERENT [None]
  - DRUG TOLERANCE [None]
  - ABDOMINAL PAIN [None]
  - RESTLESSNESS [None]
  - DRUG DEPENDENCE [None]
  - DRUG DISPENSING ERROR [None]
